FAERS Safety Report 24648209 (Version 1)
Quarter: 2024Q4

REPORT INFORMATION
  Report Type: Report from Study
  Country: US (occurrence: US)
  Receive Date: 20241121
  Receipt Date: 20241121
  Transmission Date: 20250115
  Serious: Yes (Hospitalization, Other)
  Sender: BAUSCH AND LOMB
  Company Number: US-BAUSCH-BL-2024-016949

PATIENT
  Age: 74 Year
  Sex: Female
  Weight: 64.1 kg

DRUGS (16)
  1. XIFAXAN [Suspect]
     Active Substance: RIFAXIMIN
     Indication: Hepatic encephalopathy
     Route: 048
     Dates: start: 20240502, end: 20240715
  2. GENERLAC [Concomitant]
     Active Substance: LACTULOSE
     Indication: Disturbance in attention
     Dosage: 10G/15 ML
     Route: 048
     Dates: start: 20240618, end: 20240718
  3. MIRALAX [Concomitant]
     Active Substance: POLYETHYLENE GLYCOL 3350
     Indication: Hepatic encephalopathy
     Dosage: 17G/DOSE POWDER
     Dates: start: 20240618
  4. SERTRALINE [Concomitant]
     Active Substance: SERTRALINE HYDROCHLORIDE
     Indication: Depression
     Route: 048
     Dates: start: 20240404
  5. SERTRALINE [Concomitant]
     Active Substance: SERTRALINE HYDROCHLORIDE
     Indication: Anxiety
  6. BENADRYL ALLERGY [Concomitant]
     Active Substance: DIPHENHYDRAMINE HYDROCHLORIDE
     Indication: Product used for unknown indication
     Route: 048
     Dates: start: 20240624, end: 20240624
  7. MEDROL [Concomitant]
     Active Substance: METHYLPREDNISOLONE
     Indication: Product used for unknown indication
     Route: 048
     Dates: start: 20240624
  8. TYLENOL EXTRA STRENGTH [Concomitant]
     Active Substance: ACETAMINOPHEN
     Indication: Product used for unknown indication
     Route: 048
     Dates: start: 20240502
  9. OSCAL D [CALCIUM CARBONATE;VITAMIN D NOS] [Concomitant]
     Indication: Product used for unknown indication
     Dosage: 1250MG/200 MG
     Route: 048
  10. CYMBALTA [Concomitant]
     Active Substance: DULOXETINE HYDROCHLORIDE
     Indication: Product used for unknown indication
     Route: 048
     Dates: start: 20240520
  11. SYNTHROID [Concomitant]
     Active Substance: LEVOTHYROXINE SODIUM
     Indication: Product used for unknown indication
     Route: 048
  12. HIPREX [METHENAMINE HIPPURATE] [Concomitant]
     Indication: Product used for unknown indication
     Route: 048
     Dates: start: 20231019
  13. VITAMINS NOS [Concomitant]
     Active Substance: VITAMINS
     Indication: Product used for unknown indication
     Route: 048
  14. NARCAN [Concomitant]
     Active Substance: NALOXONE HYDROCHLORIDE
     Indication: Drug withdrawal maintenance therapy
     Dosage: 4MG/ACTUATION NASAL SPRAY, INSERT 1 SPRAY INTO 1 NOSTRIL AS NEEDED
     Dates: start: 20240502
  15. PROTONIX [Concomitant]
     Active Substance: PANTOPRAZOLE SODIUM
     Indication: Gastrooesophageal reflux disease
     Route: 048
     Dates: start: 20240502
  16. CARAFATE [Concomitant]
     Active Substance: SUCRALFATE
     Indication: Product used for unknown indication
     Route: 048
     Dates: start: 20230704

REACTIONS (5)
  - Hepatic encephalopathy [Recovering/Resolving]
  - Condition aggravated [Recovering/Resolving]
  - Polypectomy [Unknown]
  - Lower limb fracture [Unknown]
  - Abdominal pain [Unknown]

NARRATIVE: CASE EVENT DATE: 20240101
